FAERS Safety Report 9351004 (Version 1)
Quarter: 2013Q2

REPORT INFORMATION
  Report Type: Spontaneous
  Country: CN (occurrence: CN)
  Receive Date: 20130617
  Receipt Date: 20130617
  Transmission Date: 20140414
  Serious: Yes (Hospitalization)
  Sender: FDA-Public Use
  Company Number: CN-BRISTOL-MYERS SQUIBB COMPANY-19016732

PATIENT
  Sex: Female

DRUGS (1)
  1. BYETTA [Suspect]
     Indication: DIABETES MELLITUS
     Dosage: INITIALLY GIVEN 5MCG?13JUN2013: 10MCG
     Route: 058

REACTIONS (2)
  - Cardiac failure [Recovering/Resolving]
  - Hypoglycaemia [Recovering/Resolving]
